FAERS Safety Report 5565453-4 (Version None)
Quarter: 2007Q4

REPORT INFORMATION
  Report Type: 
  Country: None (occurrence: None)
  Receive Date: 20071213
  Receipt Date: 20071204
  Transmission Date: 20080405
  Serious: Yes (Hospitalization)
  Sender: FDA-Public Use
  Company Number: 163-21880-07110507

PATIENT
  Age: 61 Year
  Sex: Male

DRUGS (2)
  1. REVLIMID [Suspect]
     Indication: MULTIPLE MYELOMA
     Dosage: 5 MG, 2 TIMES A WEEK AFTER DIALYSIS, ORAL; 5-25MG, DAILY, ORAL
     Route: 048
     Dates: start: 20060308, end: 20060601
  2. REVLIMID [Suspect]
     Indication: MULTIPLE MYELOMA
     Dosage: 5 MG, 2 TIMES A WEEK AFTER DIALYSIS, ORAL; 5-25MG, DAILY, ORAL
     Route: 048
     Dates: start: 20071013

REACTIONS (2)
  - CONVULSION [None]
  - PNEUMONIA ASPIRATION [None]
